FAERS Safety Report 16868049 (Version 2)
Quarter: 2019Q4

REPORT INFORMATION
  Report Type: Spontaneous
  Country: US (occurrence: US)
  Receive Date: 20190930
  Receipt Date: 20191004
  Transmission Date: 20200122
  Serious: No
  Sender: FDA-Public Use
  Company Number: US-PFIZER INC-2019414945

PATIENT
  Age: 52 Year
  Sex: Female
  Weight: 65.76 kg

DRUGS (4)
  1. MEDROL [Suspect]
     Active Substance: METHYLPREDNISOLONE
     Indication: BLISTER
  2. MEDROL [Suspect]
     Active Substance: METHYLPREDNISOLONE
     Indication: SKIN EXFOLIATION
  3. MEDROL [Suspect]
     Active Substance: METHYLPREDNISOLONE
     Indication: ORAL LICHEN PLANUS
  4. MEDROL [Suspect]
     Active Substance: METHYLPREDNISOLONE
     Indication: PAIN
     Dosage: UNK

REACTIONS (2)
  - Off label use [Unknown]
  - Drug effective for unapproved indication [Unknown]
